FAERS Safety Report 9983302 (Version 2)
Quarter: 2014Q1

REPORT INFORMATION
  Report Type: Spontaneous
  Country: AU (occurrence: AU)
  Receive Date: 20140307
  Receipt Date: 20140327
  Transmission Date: 20141002
  Serious: Yes (Hospitalization, Disabling, Other)
  Sender: FDA-Public Use
  Company Number: PHHY2014AU027538

PATIENT
  Age: 55 Year
  Sex: Female

DRUGS (3)
  1. ZOMETA [Suspect]
     Indication: BREAST CANCER METASTATIC
     Dosage: 4 MG, PER MONTH
     Dates: start: 2006
  2. HERCEPTIN [Concomitant]
  3. ANALGESICS [Concomitant]

REACTIONS (2)
  - Osteonecrosis [Not Recovered/Not Resolved]
  - Pain [Unknown]
